FAERS Safety Report 5903235-1 (Version None)
Quarter: 2008Q3

REPORT INFORMATION
  Report Type: 
  Country: None (occurrence: None)
  Receive Date: 20080926
  Receipt Date: 20080916
  Transmission Date: 20090109
  Serious: No
  Sender: FDA-Public Use
  Company Number: US024636

PATIENT

DRUGS (3)
  1. FENTORA [Suspect]
     Indication: PAIN
     Dosage: 400 UG
  2. DURAGESIC-100 [Concomitant]
  3. OPANA [Concomitant]

REACTIONS (1)
  - DRUG PRESCRIBING ERROR [None]
